FAERS Safety Report 18497542 (Version 1)
Quarter: 2020Q4

REPORT INFORMATION
  Report Type: Spontaneous
  Country: US (occurrence: US)
  Receive Date: 20201112
  Receipt Date: 20201112
  Transmission Date: 20210114
  Serious: Yes (Hospitalization, Disabling, Other)
  Sender: FDA-Public Use
  Company Number: US-SA-2020SA316358

PATIENT

DRUGS (1)
  1. PLAVIX [Suspect]
     Active Substance: CLOPIDOGREL BISULFATE
     Dosage: UNK INJECTION
     Dates: start: 201903, end: 201905

REACTIONS (17)
  - Pain [Unknown]
  - Dyspnoea exertional [Unknown]
  - Pulmonary fibrosis [Unknown]
  - Pulmonary oedema [Unknown]
  - Speech disorder [Unknown]
  - Coronary artery disease [Unknown]
  - Dyspepsia [Unknown]
  - Thrombosis [Unknown]
  - Angioedema [Unknown]
  - Respiratory distress [Unknown]
  - Chest pain [Unknown]
  - Cardiac disorder [Unknown]
  - Chronic obstructive pulmonary disease [Unknown]
  - Angina pectoris [Unknown]
  - Pulmonary pain [Unknown]
  - Muscle fatigue [Unknown]
  - Intentional product use issue [Unknown]

NARRATIVE: CASE EVENT DATE: 2019
